FAERS Safety Report 5038777-7 (Version None)
Quarter: 2006Q2

REPORT INFORMATION
  Report Type: 
  Country: None (occurrence: None)
  Receive Date: 20060601
  Receipt Date: 20060103
  Transmission Date: 20061013
  Serious: No
  Sender: FDA-Public Use
  Company Number: 2006PV006540

PATIENT
  Age: 77 Year
  Sex: Female
  Weight: 83.9154 kg

DRUGS (2)
  1. BYETTA [Suspect]
     Indication: INSULIN RESISTANCE
     Dosage: SEE IMAGE
     Route: 058
     Dates: start: 20050927, end: 20051026
  2. BYETTA [Suspect]
     Indication: INSULIN RESISTANCE
     Dosage: SEE IMAGE
     Route: 058
     Dates: start: 20051027

REACTIONS (3)
  - DYSPEPSIA [None]
  - ERUCTATION [None]
  - WEIGHT DECREASED [None]
